FAERS Safety Report 9911677 (Version 1)
Quarter: 2014Q1

REPORT INFORMATION
  Report Type: Report from Study
  Country: US (occurrence: US)
  Receive Date: 20140219
  Receipt Date: 20140219
  Transmission Date: 20141002
  Serious: Yes (Death, Hospitalization, Other)
  Sender: FDA-Public Use
  Company Number: GXBR2014US000690

PATIENT
  Age: 75 Year
  Sex: Female

DRUGS (4)
  1. ENOXAPARIN SODIUM [Suspect]
     Dosage: 100 MG, UNK
  2. PROTONIX [Concomitant]
     Dosage: 40 MG, UNK
  3. LIPITOR [Concomitant]
     Dosage: 40 MG, UNK
  4. CHEMOTHERAPEUTICS [Concomitant]
     Dosage: UNK DF, UNK

REACTIONS (2)
  - Death [Fatal]
  - Lung neoplasm malignant [Unknown]
